FAERS Safety Report 9476840 (Version 1)
Quarter: 2013Q3

REPORT INFORMATION
  Report Type: Spontaneous
  Country: US (occurrence: US)
  Receive Date: 20130826
  Receipt Date: 20130826
  Transmission Date: 20140515
  Serious: No
  Sender: FDA-Public Use
  Company Number: US-TARO-2013P1002706

PATIENT
  Age: 92 Year
  Sex: Female
  Weight: 53.98 kg

DRUGS (6)
  1. CLOBETASOL PROPIONATE CREAM [Suspect]
     Route: 061
     Dates: start: 2011, end: 201303
  2. DILTIAZEM [Concomitant]
  3. LISINOPRIL [Concomitant]
  4. CENTRUM SILVER [Concomitant]
  5. FOLIC ACID [Concomitant]
  6. VITAMIN D3 [Concomitant]

REACTIONS (2)
  - Drug ineffective for unapproved indication [Recovered/Resolved]
  - Nail growth abnormal [Recovering/Resolving]
